FAERS Safety Report 9751160 (Version 1)
Quarter: 2013Q4

REPORT INFORMATION
  Report Type: Spontaneous
  Country: US (occurrence: US)
  Receive Date: 20131212
  Receipt Date: 20131212
  Transmission Date: 20140711
  Serious: No
  Sender: FDA-Public Use
  Company Number: US-BIOGENIDEC-2013BI094282

PATIENT
  Age: 51 Year
  Sex: Female
  Weight: 48 kg

DRUGS (5)
  1. TECFIDERA [Suspect]
     Indication: MULTIPLE SCLEROSIS
     Route: 048
     Dates: start: 20130914, end: 20130921
  2. TECFIDERA [Suspect]
     Indication: MULTIPLE SCLEROSIS
     Route: 048
     Dates: start: 20130922
  3. AMPYRA [Concomitant]
     Indication: GAIT DISTURBANCE
     Route: 048
     Dates: start: 201107
  4. BACLOFEN [Concomitant]
  5. SANCTURA [Concomitant]

REACTIONS (7)
  - Dizziness [Recovered/Resolved]
  - Syncope [Recovered/Resolved]
  - Chills [Recovered/Resolved]
  - Balance disorder [Not Recovered/Not Resolved]
  - Flushing [Not Recovered/Not Resolved]
  - Nausea [Not Recovered/Not Resolved]
  - Vomiting [Recovered/Resolved]
